FAERS Safety Report 18998287 (Version 1)
Quarter: 2021Q1

REPORT INFORMATION
  Report Type: Spontaneous
  Country: DE (occurrence: DE)
  Receive Date: 20210311
  Receipt Date: 20210311
  Transmission Date: 20210420
  Serious: Yes (Hospitalization)
  Sender: FDA-Public Use
  Company Number: DE-TEVA-2021-DE-1888059

PATIENT
  Age: 85 Year
  Sex: Female
  Weight: 60 kg

DRUGS (8)
  1. METHOTREXAT [Suspect]
     Active Substance: METHOTREXATE
     Dosage: 15 MG, ONCE A WEEK
     Route: 048
  2. VIGANTOL 1000I.E. VITAMIN D3 [Concomitant]
     Dosage: 2 DOSAGE FORMS DAILY; 1?1?0?0
     Route: 048
  3. PREDNISOLON [Suspect]
     Active Substance: PREDNISOLONE
     Dosage: 5 MILLIGRAM DAILY; 1?0?0?0
     Route: 048
  4. KALIUM VERLA [Concomitant]
     Active Substance: POTASSIUM CITRATE
     Dosage: 520 MILLIGRAM DAILY;  1?0?1?0,
     Route: 048
  5. PANTOPRAZOL [Concomitant]
     Active Substance: PANTOPRAZOLE SODIUM
     Dosage: 40 MILLIGRAM DAILY; 1?0?0?0
     Route: 048
  6. LEFLUNOMID [Suspect]
     Active Substance: LEFLUNOMIDE
     Dosage: 15 MILLIGRAM DAILY; 1?0?0?0
     Route: 048
  7. FOLSAURE [Concomitant]
     Active Substance: FOLIC ACID
     Dosage: 5 MG, ACCORDING TO THE SCHEME
     Route: 048
  8. RISEDRONSAURE [Concomitant]
     Dosage: 35 MG, ONCE A WEEK
     Route: 048

REACTIONS (7)
  - Oral pain [Unknown]
  - Inflammation [Unknown]
  - Product monitoring error [Unknown]
  - Vomiting [Unknown]
  - Nausea [Unknown]
  - Dysphagia [Unknown]
  - Localised infection [Unknown]
